FAERS Safety Report 10079695 (Version 2)
Quarter: 2014Q3

REPORT INFORMATION
  Report Type: Spontaneous
  Country: US (occurrence: US)
  Receive Date: 20140415
  Receipt Date: 20140710
  Transmission Date: 20150326
  Serious: Yes (Death, Other)
  Sender: FDA-Public Use
  Company Number: US-ABBVIE-14P-163-1222548-00

PATIENT
  Age: 62 Year
  Sex: Male

DRUGS (2)
  1. ANDROGEL [Suspect]
     Active Substance: TESTOSTERONE
     Indication: BLOOD TESTOSTERONE DECREASED
     Dates: start: 200709, end: 2014
  2. ANDRODERM [Suspect]
     Active Substance: TESTOSTERONE
     Indication: BLOOD TESTOSTERONE DECREASED
     Dates: start: 200709, end: 2014

REACTIONS (8)
  - Disability [Unknown]
  - Pain [Unknown]
  - Deep vein thrombosis [Unknown]
  - Death [Fatal]
  - Economic problem [Unknown]
  - Emotional distress [Unknown]
  - Gait disturbance [Unknown]
  - Injury [Unknown]

NARRATIVE: CASE EVENT DATE: 20120405
